FAERS Safety Report 6912725-4 (Version None)
Quarter: 2010Q3

REPORT INFORMATION
  Report Type: 
  Country: None (occurrence: None)
  Receive Date: 20100806
  Receipt Date: 20081016
  Transmission Date: 20110219
  Serious: No
  Sender: FDA-Public Use
  Company Number: US-PFIZER INC-2008074338

PATIENT
  Sex: Male
  Weight: 56 kg

DRUGS (10)
  1. VFEND [Suspect]
     Indication: BRONCHOPULMONARY ASPERGILLOSIS
     Route: 048
     Dates: start: 20080825
  2. ALBUTEROL [Concomitant]
  3. NAFCILLIN [Concomitant]
  4. CEFTAZIDIME [Concomitant]
  5. CIPROFLOXACIN [Concomitant]
  6. TACRYL [Concomitant]
  7. MONTELUKAST SODIUM [Concomitant]
  8. AMLODIPINE [Concomitant]
  9. MAGNESIUM [Concomitant]
  10. INSULIN [Concomitant]

REACTIONS (1)
  - DRUG LEVEL DECREASED [None]
